FAERS Safety Report 7525344-6 (Version None)
Quarter: 2011Q2

REPORT INFORMATION
  Report Type: 
  Country: None (occurrence: None)
  Receive Date: 20110526
  Receipt Date: 20110512
  Transmission Date: 20111010
  Serious: Yes (Other)
  Sender: FDA-Public Use
  Company Number: 1000017482

PATIENT
  Age: 35 Year
  Sex: Female

DRUGS (3)
  1. YASMINELLE (DROSPIRENONE, ETHINYL ESTRADIOL) (TABLETS) (DROSPIRENONE, [Concomitant]
  2. ESCITALOPRAM [Suspect]
     Indication: POSTPARTUM DEPRESSION
     Dosage: 20 MG (20 MG,1 IN 1 D),ORAL
     Route: 048
     Dates: start: 20090202
  3. CYMBALTA [Suspect]
     Indication: POSTPARTUM DEPRESSION
     Dosage: 60 MG (60 MG,1 IN 1 D),ORAL
     Route: 048
     Dates: start: 20091111

REACTIONS (3)
  - PREGNANCY [None]
  - DRUG EXPOSURE DURING PREGNANCY [None]
  - OLIGOHYDRAMNIOS [None]
